FAERS Safety Report 7576154-5 (Version None)
Quarter: 2011Q2

REPORT INFORMATION
  Report Type: 
  Country: None (occurrence: None)
  Receive Date: 20110623
  Receipt Date: 20110623
  Transmission Date: 20111010
  Serious: Yes (Hospitalization, Other)
  Sender: FDA-Public Use
  Company Number: None

PATIENT
  Age: 64 Year
  Sex: Male
  Weight: 61.916 kg

DRUGS (13)
  1. OXALIPLATIN [Suspect]
     Indication: DEHYDRATION
     Dosage: 85MG/M2 2 WEEKS IV DRIP
     Route: 041
     Dates: start: 20110524, end: 20110609
  2. OXALIPLATIN [Suspect]
     Indication: DIARRHOEA
     Dosage: 85MG/M2 2 WEEKS IV DRIP
     Route: 041
     Dates: start: 20110524, end: 20110609
  3. CLONIDINE [Concomitant]
  4. CETUXIMAB [Suspect]
     Indication: DIARRHOEA
     Dosage: 500MG/M2 2 WEEKS IV DRIP
     Route: 041
     Dates: start: 20110524, end: 20110609
  5. CETUXIMAB [Suspect]
     Indication: DEHYDRATION
     Dosage: 500MG/M2 2 WEEKS IV DRIP
     Route: 041
     Dates: start: 20110524, end: 20110609
  6. ROSUVASTATIN [Concomitant]
  7. FERROUS SULFATE TAB [Concomitant]
  8. ASPIRIN [Concomitant]
  9. BACLOFEN [Concomitant]
  10. INSULIN [Concomitant]
  11. AMLODIPINE [Concomitant]
  12. ATENOLOL [Concomitant]
  13. GABAPENTIN [Concomitant]

REACTIONS (5)
  - DEHYDRATION [None]
  - NAUSEA [None]
  - PYREXIA [None]
  - DIARRHOEA [None]
  - VOMITING [None]
